FAERS Safety Report 8218110-X (Version None)
Quarter: 2012Q1

REPORT INFORMATION
  Report Type: 
  Country: None (occurrence: None)
  Receive Date: 20120316
  Receipt Date: 20120316
  Transmission Date: 20120608
  Serious: Yes (Other)
  Sender: FDA-Public Use
  Company Number: None

PATIENT
  Age: 30 Year
  Sex: Female
  Weight: 58.9676 kg

DRUGS (1)
  1. MIRENA [Suspect]
     Dates: start: 20110825, end: 20120228

REACTIONS (5)
  - MENORRHAGIA [None]
  - ABORTION SPONTANEOUS [None]
  - HAEMORRHAGE [None]
  - TREATMENT FAILURE [None]
  - PREGNANCY WITH IMPLANT CONTRACEPTIVE [None]
